FAERS Safety Report 4529622-4 (Version None)
Quarter: 2004Q4

REPORT INFORMATION
  Report Type: 
  Country: None (occurrence: None)
  Receive Date: 20041216
  Receipt Date: 20040720
  Transmission Date: 20050328
  Serious: Yes (Hospitalization, Other)
  Sender: FDA-Public Use
  Company Number: US-MERCK-0407USA01749

PATIENT
  Age: 50 Year
  Sex: Female
  Weight: 67 kg

DRUGS (17)
  1. VIOXX [Suspect]
     Route: 048
     Dates: start: 20010412, end: 20020128
  2. ASPIRIN [Concomitant]
     Indication: CEREBROVASCULAR ACCIDENT PROPHYLAXIS
     Route: 048
  3. MOTRIN [Concomitant]
     Route: 048
     Dates: start: 20020701, end: 20021101
  4. TYLENOL (CAPLET) [Concomitant]
     Route: 048
     Dates: start: 20020701, end: 20021101
  5. BUTALBITAL [Concomitant]
     Route: 048
  6. GUAIFENEX [Concomitant]
     Route: 048
  7. CLIDINIUM BROMIDE [Concomitant]
     Route: 048
  8. ESTROPIPATE [Concomitant]
     Route: 048
  9. CLARITIN-D [Concomitant]
     Route: 048
  10. SKELAXIN [Concomitant]
     Route: 048
  11. KETOCONAZOLE [Concomitant]
     Route: 048
  12. PREDNISONE [Concomitant]
     Route: 048
  13. BIAXIN [Concomitant]
     Route: 048
  14. DIFLUCAN [Concomitant]
     Route: 065
  15. TRIMOX [Concomitant]
     Route: 048
  16. HYDROCODONE BITARTRATE [Concomitant]
     Route: 048
  17. DIOVAN [Concomitant]
     Route: 048

REACTIONS (10)
  - CEREBROVASCULAR ACCIDENT [None]
  - COLONIC POLYP [None]
  - DYSPHONIA [None]
  - FEELING ABNORMAL [None]
  - HEART RATE IRREGULAR [None]
  - HOARSENESS [None]
  - INTERVERTEBRAL DISC PROTRUSION [None]
  - SPINAL COLUMN STENOSIS [None]
  - SPINAL CORD COMPRESSION [None]
  - VOCAL CORD THICKENING [None]
